FAERS Safety Report 12590604 (Version 1)
Quarter: 2016Q3

REPORT INFORMATION
  Report Type: Spontaneous
  Country: US (occurrence: US)
  Receive Date: 20160725
  Receipt Date: 20160725
  Transmission Date: 20161109
  Serious: Yes (Other)
  Sender: FDA-Public Use
  Company Number: US-ACI HEALTHCARE LIMITED-1055543

PATIENT
  Sex: Male
  Weight: 105.21 kg

DRUGS (16)
  1. GABAPENTIN. [Suspect]
     Active Substance: GABAPENTIN
     Indication: FIBROMYALGIA
  2. RISPERIDONE. [Suspect]
     Active Substance: RISPERIDONE
     Route: 048
  3. TIZANIDINE HYDROCHLORIDE. [Concomitant]
     Active Substance: TIZANIDINE HYDROCHLORIDE
  4. GABAPENTIN. [Suspect]
     Active Substance: GABAPENTIN
  5. TIZANIDINE HYDROCHLORIDE. [Concomitant]
     Active Substance: TIZANIDINE HYDROCHLORIDE
  6. TRAZODONE [Concomitant]
     Active Substance: TRAZODONE HYDROCHLORIDE
  7. GABAPENTIN. [Suspect]
     Active Substance: GABAPENTIN
  8. TRAZODONE [Concomitant]
     Active Substance: TRAZODONE HYDROCHLORIDE
  9. RISPERIDONE. [Suspect]
     Active Substance: RISPERIDONE
  10. TIZANIDINE HYDROCHLORIDE. [Concomitant]
     Active Substance: TIZANIDINE HYDROCHLORIDE
  11. RISPERIDONE. [Suspect]
     Active Substance: RISPERIDONE
     Route: 048
  12. TOPIRAMATE. [Concomitant]
     Active Substance: TOPIRAMATE
  13. TOPIRAMATE. [Concomitant]
     Active Substance: TOPIRAMATE
  14. DOXEPIN HYDROCHLORIDE. [Concomitant]
     Active Substance: DOXEPIN HYDROCHLORIDE
  15. VRAYLAR [Concomitant]
     Active Substance: CARIPRAZINE
  16. CLONAZEPAM. [Concomitant]
     Active Substance: CLONAZEPAM

REACTIONS (14)
  - Tooth fracture [Unknown]
  - Heart rate increased [Unknown]
  - Barrett^s oesophagus [Not Recovered/Not Resolved]
  - Dry mouth [Unknown]
  - Small cell lung cancer [Not Recovered/Not Resolved]
  - Haematemesis [Unknown]
  - Feeling abnormal [None]
  - Panic attack [Unknown]
  - Erectile dysfunction [Not Recovered/Not Resolved]
  - Terminal state [Not Recovered/Not Resolved]
  - Weight increased [None]
  - Off label use [Not Recovered/Not Resolved]
  - Corrective lens user [Not Recovered/Not Resolved]
  - Fibromyalgia [Not Recovered/Not Resolved]
